FAERS Safety Report 8924544 (Version 1)
Quarter: 2012Q4

REPORT INFORMATION
  Report Type: Spontaneous
  Country: US (occurrence: None)
  Receive Date: 20121121
  Receipt Date: 20121121
  Transmission Date: 20130627
  Serious: Yes (Hospitalization)
  Sender: FDA-Public Use
  Company Number: None

PATIENT
  Age: 57 Year
  Sex: Male

DRUGS (1)
  1. CLOZAPINE [Suspect]
     Indication: SCHIZO-AFFECTIVE TYPE SCHIZOPHRENIA, CHRONIC STATE
     Route: 048
     Dates: start: 20110620, end: 20120419

REACTIONS (6)
  - Leukopenia [None]
  - Granulocytopenia [None]
  - Agranulocytosis [None]
  - Salmonellosis [None]
  - Ileus [None]
  - Constipation [None]
